FAERS Safety Report 7762075-1 (Version None)
Quarter: 2011Q3

REPORT INFORMATION
  Report Type: 
  Country: None (occurrence: None)
  Receive Date: 20110920
  Receipt Date: 20110920
  Transmission Date: 20111222
  Serious: No
  Sender: FDA-Public Use
  Company Number: None

PATIENT
  Age: 22 Year
  Sex: Female
  Weight: 74.842 kg

DRUGS (1)
  1. SPIRONOLACTONE [Suspect]
     Indication: HORMONE LEVEL ABNORMAL
     Dosage: 25MG
     Route: 048
     Dates: start: 20110826, end: 20110916

REACTIONS (1)
  - ANGIOEDEMA [None]
